FAERS Safety Report 7227399-5 (Version None)
Quarter: 2011Q1

REPORT INFORMATION
  Report Type: 
  Country: None (occurrence: None)
  Receive Date: 20110111
  Receipt Date: 20110111
  Transmission Date: 20110831
  Serious: No
  Sender: FDA-Public Use
  Company Number: None

PATIENT
  Age: 62 Year
  Sex: Female
  Weight: 99.7913 kg

DRUGS (1)
  1. VICKS NYQUIL COLD + FLU NIGHTTIM [Suspect]
     Indication: COUGH
     Dosage: ONCE
     Dates: start: 20100106, end: 20100106

REACTIONS (7)
  - PARAESTHESIA ORAL [None]
  - MUSCLE TIGHTNESS [None]
  - FLUSHING [None]
  - ABDOMINAL DISCOMFORT [None]
  - ERYTHEMA OF EYELID [None]
  - NASAL OEDEMA [None]
  - ERYTHEMA [None]
